FAERS Safety Report 26213693 (Version 1)
Quarter: 2025Q4

REPORT INFORMATION
  Report Type: Report from Study
  Country: TW (occurrence: TW)
  Receive Date: 20251230
  Receipt Date: 20251230
  Transmission Date: 20260117
  Serious: Yes (Other)
  Sender: GILEAD
  Company Number: TW-GILEAD-2025-0741725

PATIENT
  Age: 64 Year
  Sex: Female

DRUGS (1)
  1. SACITUZUMAB GOVITECAN-HZIY [Suspect]
     Active Substance: SACITUZUMAB GOVITECAN-HZIY
     Indication: Hormone receptor positive breast cancer
     Dosage: 540 MG, INJECTION
     Route: 065
     Dates: start: 20251201

REACTIONS (4)
  - Bone cancer [Unknown]
  - Lymphoma [Unknown]
  - Bladder neoplasm [Unknown]
  - Vomiting [Unknown]

NARRATIVE: CASE EVENT DATE: 20251215
